FAERS Safety Report 5892411-2 (Version None)
Quarter: 2008Q3

REPORT INFORMATION
  Report Type: 
  Country: None (occurrence: None)
  Receive Date: 20080919
  Receipt Date: 20080919
  Transmission Date: 20090109
  Serious: Yes (Other)
  Sender: FDA-Public Use
  Company Number: None

PATIENT
  Age: 54 Year
  Sex: Female
  Weight: 106.5953 kg

DRUGS (2)
  1. CYMBALTA [Suspect]
     Indication: ARTHRITIS
     Dosage: 120MG DAILY PO
     Route: 048
     Dates: start: 20061101, end: 20080510
  2. CYMBALTA [Suspect]
     Indication: DEPRESSION
     Dosage: 120MG DAILY PO
     Route: 048
     Dates: start: 20061101, end: 20080510

REACTIONS (21)
  - BEDRIDDEN [None]
  - CONFUSIONAL STATE [None]
  - CRYING [None]
  - DISTURBANCE IN ATTENTION [None]
  - DIZZINESS [None]
  - FATIGUE [None]
  - GASTRIC DISORDER [None]
  - INCONTINENCE [None]
  - INSOMNIA [None]
  - JOINT SWELLING [None]
  - LOSS OF EMPLOYMENT [None]
  - MALAISE [None]
  - MYALGIA [None]
  - NAUSEA [None]
  - NIGHTMARE [None]
  - OEDEMA PERIPHERAL [None]
  - PARAESTHESIA [None]
  - PARTNER STRESS [None]
  - SOMNOLENCE [None]
  - WEIGHT INCREASED [None]
  - WITHDRAWAL SYNDROME [None]
